FAERS Safety Report 11400037 (Version 2)
Quarter: 2015Q3

REPORT INFORMATION
  Report Type: Spontaneous
  Country: US (occurrence: US)
  Receive Date: 20150820
  Receipt Date: 20150824
  Transmission Date: 20151125
  Serious: Yes (Hospitalization)
  Sender: FDA-Public Use
  Company Number: US-ACTELION-A-NJ2015-122613

PATIENT
  Age: 33 Year
  Sex: Female

DRUGS (4)
  1. ADCIRCA [Concomitant]
     Active Substance: TADALAFIL
  2. COUMADIN [Concomitant]
     Active Substance: WARFARIN SODIUM
  3. TRACLEER [Suspect]
     Active Substance: BOSENTAN
     Indication: PULMONARY ARTERIAL HYPERTENSION
     Dosage: UNK
     Route: 048
  4. SILDENAFIL. [Concomitant]
     Active Substance: SILDENAFIL

REACTIONS (1)
  - Cellulitis [Unknown]
